FAERS Safety Report 4411032-1 (Version None)
Quarter: 2004Q3

REPORT INFORMATION
  Report Type: 
  Country: None (occurrence: None)
  Receive Date: 20040726
  Receipt Date: 20040709
  Transmission Date: 20050211
  Serious: Yes (Hospitalization)
  Sender: FDA-Public Use
  Company Number: 175326

PATIENT
  Age: 25 Year
  Sex: Male
  Weight: 156 kg

DRUGS (4)
  1. AVONEX [Suspect]
     Indication: MULTIPLE SCLEROSIS
     Dosage: 30 MCG, IM
     Route: 030
     Dates: start: 19980101, end: 19990101
  2. AVONEX [Suspect]
     Indication: MULTIPLE SCLEROSIS
     Dosage: 30 MCG QW IM
     Route: 030
     Dates: start: 20010901
  3. OXYBUTYNIN [Concomitant]
  4. BACLOFEN [Concomitant]

REACTIONS (7)
  - CONDITION AGGRAVATED [None]
  - DEVICE FAILURE [None]
  - FEELING ABNORMAL [None]
  - HYPERTENSION [None]
  - MULTIPLE SCLEROSIS [None]
  - MUSCLE SPASMS [None]
  - PYREXIA [None]
